FAERS Safety Report 16287881 (Version 2)
Quarter: 2024Q4

REPORT INFORMATION
  Report Type: Spontaneous
  Country: FR (occurrence: FR)
  Receive Date: 20190508
  Receipt Date: 20241209
  Transmission Date: 20250115
  Serious: Yes (Other)
  Sender: MYLAN
  Company Number: None

PATIENT
  Age: 67 Year
  Sex: Female
  Weight: 56 kg

DRUGS (2)
  1. DUPHASTON [Suspect]
     Active Substance: DYDROGESTERONE
     Indication: Hormone replacement therapy
     Dosage: UNK
     Route: 048
     Dates: end: 2007
  2. ESTRADIOL [Suspect]
     Active Substance: ESTRADIOL
     Indication: Hormone replacement therapy
     Dosage: UNK
     Route: 062
     Dates: end: 2007

REACTIONS (1)
  - Meningioma [Not Recovered/Not Resolved]

NARRATIVE: CASE EVENT DATE: 20180101
